FAERS Safety Report 6686694-9 (Version None)
Quarter: 2010Q2

REPORT INFORMATION
  Report Type: 
  Country: None (occurrence: None)
  Receive Date: 20100419
  Receipt Date: 20100408
  Transmission Date: 20101027
  Serious: Yes (Other)
  Sender: FDA-Public Use
  Company Number: US-JNJFOC-20100402200

PATIENT
  Sex: Female

DRUGS (1)
  1. HALDOL [Suspect]
     Indication: DRUG USE FOR UNKNOWN INDICATION
     Route: 065

REACTIONS (16)
  - BLOOD DISORDER [None]
  - DIZZINESS [None]
  - DROOLING [None]
  - DYSPHORIA [None]
  - INSOMNIA [None]
  - LOSS OF CONSCIOUSNESS [None]
  - MENTAL DISORDER [None]
  - MUSCLE SPASMS [None]
  - MYALGIA [None]
  - PSYCHOTIC DISORDER [None]
  - RESTLESSNESS [None]
  - SPEECH DISORDER [None]
  - TARDIVE DYSKINESIA [None]
  - TEMPERATURE INTOLERANCE [None]
  - VAGINAL HAEMORRHAGE [None]
  - VISION BLURRED [None]
